FAERS Safety Report 8729968 (Version 2)
Quarter: 2012Q4

REPORT INFORMATION
  Report Type: 
  Country: US (occurrence: US)
  Receive Date: 20120904
  Receipt Date: 20121114
  Transmission Date: 20130627
  Serious: Yes (Hospitalization)
  Sender: FDA-Public Use
  Company Number: US-GLAXOSMITHKLINE-A0975014A

PATIENT
  Age: 53 Year
  Sex: Male
  Weight: 110 kg

DRUGS (6)
  1. VOTRIENT [Suspect]
     Indication: RENAL CANCER
     Dosage: 800MG Per day
     Route: 048
     Dates: start: 20120229, end: 20120821
  2. METOPROLOL [Concomitant]
     Indication: HYPERTENSION
     Dosage: 50MG Twice per day
     Route: 048
  3. NORTRIPTYLINE [Concomitant]
     Dosage: 25MG At night
     Route: 048
  4. NIFEDIPINE ER [Concomitant]
     Indication: HYPERTENSION
     Dosage: 30MG At night
     Route: 048
  5. LANTUS [Concomitant]
     Indication: DIABETES MELLITUS
  6. GLUCOTROL [Concomitant]
     Indication: DIABETES MELLITUS
     Dosage: 10MG Twice per day
     Route: 048

REACTIONS (7)
  - Pancreatitis acute [Recovered/Resolved]
  - Nausea [Not Recovered/Not Resolved]
  - Vomiting [Not Recovered/Not Resolved]
  - Hunger [Not Recovered/Not Resolved]
  - Decreased appetite [Not Recovered/Not Resolved]
  - Chest pain [Not Recovered/Not Resolved]
  - Lipase increased [Recovered/Resolved]
